APPROVED DRUG PRODUCT: AMLODIPINE BESYLATE AND BENAZEPRIL HYDROCHLORIDE
Active Ingredient: AMLODIPINE BESYLATE; BENAZEPRIL HYDROCHLORIDE
Strength: EQ 5MG BASE;40MG
Dosage Form/Route: CAPSULE;ORAL
Application: A090364 | Product #001 | TE Code: AB
Applicant: WATSON LABORATORIES INC
Approved: Jul 5, 2011 | RLD: No | RS: No | Type: RX